FAERS Safety Report 5526656-8 (Version None)
Quarter: 2007Q4

REPORT INFORMATION
  Report Type: 
  Country: None (occurrence: None)
  Receive Date: 20071127
  Receipt Date: 20071122
  Transmission Date: 20080405
  Serious: Yes (Hospitalization)
  Sender: FDA-Public Use
  Company Number: PHHO2007FR16631

PATIENT
  Age: 42 Year
  Sex: Female
  Weight: 63.3 kg

DRUGS (1)
  1. MYFORTIC [Suspect]
     Indication: RENAL TRANSPLANT
     Dosage: 1440 MG/DAY
     Route: 048

REACTIONS (7)
  - ABSCESS DRAINAGE [None]
  - CYTOMEGALOVIRUS INFECTION [None]
  - EXTRINSIC VASCULAR COMPRESSION [None]
  - LYMPHOCELE [None]
  - OEDEMA PERIPHERAL [None]
  - PERICARDITIS [None]
  - PYREXIA [None]
